FAERS Safety Report 12099665 (Version 1)
Quarter: 2016Q1

REPORT INFORMATION
  Report Type: Spontaneous
  Country: US (occurrence: None)
  Receive Date: 20160219
  Receipt Date: 20160219
  Transmission Date: 20160526
  Serious: No
  Sender: FDA-Public Use
  Company Number: None

PATIENT

DRUGS (2)
  1. VAZCULEP [Suspect]
     Active Substance: PHENYLEPHRINE HYDROCHLORIDE
     Dosage: INJECTABLE, INTRAVENOUS 50MG/5 ML VIAL 5 ML
     Route: 042
  2. BLOXIVERZ [Suspect]
     Active Substance: NEOSTIGMINE METHYLSULFATE
     Dosage: 10 MG/10 ML MULTIPLE DOSE VIAL 10 ML
     Route: 042

REACTIONS (2)
  - Intercepted drug dispensing error [None]
  - Circumstance or information capable of leading to medication error [None]
